FAERS Safety Report 11815395 (Version 3)
Quarter: 2016Q4

REPORT INFORMATION
  Report Type: Spontaneous
  Country: FR (occurrence: FR)
  Receive Date: 20151209
  Receipt Date: 20161107
  Transmission Date: 20170206
  Serious: Yes (Congenital Anomaly, Other)
  Sender: FDA-Public Use
  Company Number: FR-ABBVIE-15P-056-1515893-00

PATIENT
  Age: 0 Day
  Sex: Male

DRUGS (1)
  1. DEPAKINE [Suspect]
     Active Substance: VALPROATE SODIUM
     Indication: MATERNAL EXPOSURE TIMING UNSPECIFIED
     Route: 064

REACTIONS (29)
  - Astigmatism [Not Recovered/Not Resolved]
  - Movement disorder [Unknown]
  - Foot deformity [Unknown]
  - Mite allergy [Unknown]
  - Microcephaly [Not Recovered/Not Resolved]
  - Congenital genital malformation [Unknown]
  - Male genital examination abnormal [Unknown]
  - Cardiac murmur functional [Unknown]
  - Myopia [Not Recovered/Not Resolved]
  - Kyphosis [Unknown]
  - External ear disorder [Unknown]
  - Muscle tone disorder [Not Recovered/Not Resolved]
  - Feeding disorder [Not Recovered/Not Resolved]
  - Motor dysfunction [Not Recovered/Not Resolved]
  - Psychomotor retardation [Not Recovered/Not Resolved]
  - Hypospadias [Unknown]
  - Phimosis [Unknown]
  - Hypertelorism of orbit [Unknown]
  - Dysmorphism [Not Recovered/Not Resolved]
  - Encephalopathy [Not Recovered/Not Resolved]
  - Plagiocephaly [Unknown]
  - Nose deformity [Unknown]
  - Foetal anticonvulsant syndrome [Not Recovered/Not Resolved]
  - Foetal exposure during pregnancy [Unknown]
  - Abnormal behaviour [Unknown]
  - Asthma [Unknown]
  - Growth retardation [Not Recovered/Not Resolved]
  - Strabismus [Not Recovered/Not Resolved]
  - Nipple disorder [Unknown]
